FAERS Safety Report 6263718-4 (Version None)
Quarter: 2009Q3

REPORT INFORMATION
  Report Type: 
  Country: None (occurrence: None)
  Receive Date: 20090702
  Receipt Date: 20090422
  Transmission Date: 20100115
  Serious: No
  Sender: FDA-Public Use
  Company Number: 1000005982

PATIENT

DRUGS (1)
  1. BYSTOLIC [Suspect]
     Indication: HYPERTENSION

REACTIONS (1)
  - WEIGHT INCREASED [None]
